FAERS Safety Report 5909942-9 (Version None)
Quarter: 2008Q4

REPORT INFORMATION
  Report Type: 
  Country: None (occurrence: None)
  Receive Date: 20081006
  Receipt Date: 20081006
  Transmission Date: 20090506
  Serious: No
  Sender: FDA-Public Use
  Company Number: None

PATIENT
  Age: 53 Year
  Sex: Female
  Weight: 99.3377 kg

DRUGS (1)
  1. METOPROLOL SUCCINATE EXTENDED RELEASE [Suspect]
     Indication: HYPERTENSION
     Dosage: 50MG DAILY PO
     Route: 048
     Dates: start: 20080926, end: 20081003

REACTIONS (3)
  - BLOOD PRESSURE INADEQUATELY CONTROLLED [None]
  - PALPITATIONS [None]
  - PRODUCT QUALITY ISSUE [None]
